FAERS Safety Report 9185011 (Version 1)
Quarter: 2013Q1

REPORT INFORMATION
  Report Type: Spontaneous
  Country: GB (occurrence: GB)
  Receive Date: 20130325
  Receipt Date: 20130325
  Transmission Date: 20140127
  Serious: Yes (Hospitalization, Other)
  Sender: FDA-Public Use
  Company Number: GB-JNJFOC-2001079522GB

PATIENT
  Age: 29 Year
  Sex: Male

DRUGS (2)
  1. MOTRIN [Suspect]
     Indication: PAIN IN EXTREMITY
     Dosage: DAILY DOSE TEXT: UP TO 400MG
     Route: 048
     Dates: end: 19950429
  2. CIPROFIBRATE [Interacting]
     Indication: HYPERCHOLESTEROLAEMIA
     Dosage: DAILY DOSE TEXT: 100-200MG

REACTIONS (3)
  - Drug interaction [Recovered/Resolved]
  - Rhabdomyolysis [Recovered/Resolved]
  - Renal failure acute [Recovered/Resolved]
